FAERS Safety Report 5615171-9 (Version None)
Quarter: 2008Q1

REPORT INFORMATION
  Report Type: 
  Country: None (occurrence: None)
  Receive Date: 20080206
  Receipt Date: 20071025
  Transmission Date: 20080703
  Serious: No
  Sender: FDA-Public Use
  Company Number: A0689811A

PATIENT
  Age: 57 Year
  Sex: Female

DRUGS (6)
  1. ARIXTRA [Suspect]
     Indication: DEEP VEIN THROMBOSIS
     Dosage: 7.5MG PER DAY
     Route: 058
     Dates: start: 20071016
  2. COUMADIN [Suspect]
     Dosage: 5MG PER DAY
     Dates: start: 20071011, end: 20071016
  3. WARFARIN SODIUM [Suspect]
     Dosage: 3.75MG PER DAY
     Dates: start: 20070806, end: 20071011
  4. BUPROPION HCL [Concomitant]
  5. HYDROCODONE BITARTRATE [Concomitant]
  6. TRICOR [Concomitant]

REACTIONS (6)
  - BURNING SENSATION [None]
  - DRY EYE [None]
  - DYSPHONIA [None]
  - DYSPNOEA [None]
  - EYE IRRITATION [None]
  - ORAL DISCOMFORT [None]
